FAERS Safety Report 6589363-9 (Version None)
Quarter: 2010Q1

REPORT INFORMATION
  Report Type: 
  Country: None (occurrence: None)
  Receive Date: 20100218
  Receipt Date: 20100216
  Transmission Date: 20100710
  Serious: Yes (Hospitalization)
  Sender: FDA-Public Use
  Company Number: FR-WYE-G05580710

PATIENT
  Age: 59 Year
  Sex: Female

DRUGS (2)
  1. TORISEL [Suspect]
     Indication: RENAL CANCER METASTATIC
     Route: 042
     Dates: start: 20100114, end: 20100201
  2. PREVISCAN [Suspect]
     Indication: THROMBOSIS PROPHYLAXIS
     Dosage: UNKNOWN
     Dates: end: 20100201

REACTIONS (4)
  - ABDOMINAL PAIN [None]
  - GENERAL PHYSICAL HEALTH DETERIORATION [None]
  - HAEMORRHAGIC ANAEMIA [None]
  - TUMOUR HAEMORRHAGE [None]
